FAERS Safety Report 4390499-1 (Version None)
Quarter: 2004Q2

REPORT INFORMATION
  Report Type: 
  Country: None (occurrence: None)
  Receive Date: 20040630
  Receipt Date: 20040618
  Transmission Date: 20050107
  Serious: Yes (Other)
  Sender: FDA-Public Use
  Company Number: US-JNJFOC-20040405693

PATIENT
  Age: 49 Year
  Sex: Male

DRUGS (4)
  1. DURAGESIC [Suspect]
     Indication: PAIN
     Dosage: SEE IMAGE
     Route: 062
     Dates: start: 20020101, end: 20040301
  2. DURAGESIC [Suspect]
     Indication: PAIN
     Dosage: SEE IMAGE
     Route: 062
     Dates: start: 20040301, end: 20040401
  3. DURAGESIC [Suspect]
     Indication: PAIN
     Dosage: SEE IMAGE
     Route: 062
     Dates: start: 20040401
  4. NEURONTIN [Concomitant]

REACTIONS (4)
  - HYPERHIDROSIS [None]
  - NERVOUSNESS [None]
  - PETIT MAL EPILEPSY [None]
  - TREMOR [None]
